FAERS Safety Report 9344612 (Version 1)
Quarter: 2013Q2

REPORT INFORMATION
  Report Type: Spontaneous
  Country: US (occurrence: None)
  Receive Date: 20130611
  Receipt Date: 20130611
  Transmission Date: 20140414
  Serious: No
  Sender: FDA-Public Use
  Company Number: None

PATIENT
  Age: 60 Year
  Sex: Male

DRUGS (7)
  1. STIVARGA [Suspect]
     Indication: COLON CANCER
     Route: 048
     Dates: start: 20130504
  2. PANTOPRAZOLE [Concomitant]
  3. DEXAMETHASONE [Concomitant]
  4. LOSARTAN [Concomitant]
  5. OXYCONTIN [Concomitant]
  6. METHYLPREDNISOLONE [Concomitant]
  7. CARAFATE [Concomitant]

REACTIONS (1)
  - Blood bilirubin increased [None]
